FAERS Safety Report 8135548-X (Version None)
Quarter: 2012Q1

REPORT INFORMATION
  Report Type: 
  Country: None (occurrence: None)
  Receive Date: 20120210
  Receipt Date: 20120130
  Transmission Date: 20120608
  Serious: Yes (Death)
  Sender: FDA-Public Use
  Company Number: UTC-014158

PATIENT
  Sex: Male
  Weight: 67.6 kg

DRUGS (4)
  1. REVATIO [Concomitant]
  2. REMODULIN [Suspect]
     Indication: PULMONARY ARTERIAL HYPERTENSION
     Dosage: 223.2 UG/KG (0.155 UG/KR, 1 IN 1 MIN), INTRAVENOUS
     Route: 042
     Dates: start: 20060603
  3. DIURETICS (DIURETICS) [Concomitant]
  4. TRACLEER [Concomitant]

REACTIONS (2)
  - HAEMOPTYSIS [None]
  - ABDOMINAL PAIN [None]
